FAERS Safety Report 16532577 (Version 1)
Quarter: 2019Q3

REPORT INFORMATION
  Report Type: Spontaneous
  Country: US (occurrence: US)
  Receive Date: 20190705
  Receipt Date: 20190705
  Transmission Date: 20191004
  Serious: No
  Sender: FDA-Public Use
  Company Number: US-BAYER-2019-126543

PATIENT
  Sex: Male
  Weight: 78.02 kg

DRUGS (2)
  1. DOXYCYCLINE. [Suspect]
     Active Substance: DOXYCYCLINE
     Indication: ARTHROPOD BITE
     Dosage: 200 MG, ONCE
     Dates: start: 20190420
  2. CLARITIN [Suspect]
     Active Substance: LORATADINE
     Indication: ARTHROPOD BITE
     Dosage: UNK UNK, ONCE
     Dates: start: 20190420

REACTIONS (5)
  - Tinnitus [Not Recovered/Not Resolved]
  - Pain [None]
  - Thinking abnormal [Not Recovered/Not Resolved]
  - Milk allergy [Not Recovered/Not Resolved]
  - Weight decreased [Not Recovered/Not Resolved]

NARRATIVE: CASE EVENT DATE: 2019
